FAERS Safety Report 5683052-0 (Version None)
Quarter: 2008Q1

REPORT INFORMATION
  Report Type: 
  Country: None (occurrence: None)
  Receive Date: 20080327
  Receipt Date: 20080321
  Transmission Date: 20080703
  Serious: Yes (Hospitalization)
  Sender: FDA-Public Use
  Company Number: US-BAXTER-2008BH002635

PATIENT
  Sex: Female

DRUGS (1)
  1. HEPARIN SODIUM [Suspect]
     Indication: PROPHYLAXIS
     Dosage: DOSE UNIT:UNKNOWN
     Route: 065

REACTIONS (2)
  - DIARRHOEA [None]
  - PERITONITIS [None]
